FAERS Safety Report 17095554 (Version 1)
Quarter: 2019Q4

REPORT INFORMATION
  Report Type: Spontaneous
  Country: US (occurrence: US)
  Receive Date: 20191104
  Receipt Date: 20191104
  Transmission Date: 20200122
  Serious: No
  Sender: FDA-Public Use
  Company Number: None

PATIENT
  Age: 54 Year
  Sex: Female

DRUGS (2)
  1. CAPECITABINE 500MG TEVA PHARMACEUTICALS USA INC [Suspect]
     Active Substance: CAPECITABINE
     Indication: BREAST CANCER
     Route: 048
     Dates: start: 20190919
  2. CAPECITABINE 150MG MYLAN [Suspect]
     Active Substance: CAPECITABINE
     Indication: BREAST CANCER
     Route: 048
     Dates: start: 20190919

REACTIONS (6)
  - Erythema [None]
  - Hyperaesthesia [None]
  - Burning sensation [None]
  - Sunburn [None]
  - Tenderness [None]
  - Paraesthesia [None]

NARRATIVE: CASE EVENT DATE: 20191028
